FAERS Safety Report 6144046-4 (Version None)
Quarter: 2009Q2

REPORT INFORMATION
  Report Type: 
  Country: None (occurrence: None)
  Receive Date: 20090406
  Receipt Date: 20090327
  Transmission Date: 20091009
  Serious: Yes (Death, Hospitalization, Other)
  Sender: FDA-Public Use
  Company Number: FR-AMGEN-UK310970

PATIENT
  Age: 75 Year
  Sex: Female

DRUGS (11)
  1. ARANESP [Suspect]
     Indication: ANAEMIA
     Route: 058
     Dates: start: 20050107, end: 20050217
  2. DEXAMETHASONE TAB [Concomitant]
     Route: 065
     Dates: start: 20040501
  3. CORTICOSTEROID NOS [Concomitant]
     Route: 065
  4. COLCHICINE [Concomitant]
     Route: 065
  5. KERLONE [Concomitant]
     Route: 065
  6. NISISCO [Concomitant]
     Route: 065
  7. TAHOR [Concomitant]
     Route: 065
  8. VASTAREL [Concomitant]
     Route: 065
  9. NEXIUM [Concomitant]
     Route: 065
  10. LORAZEPAM [Concomitant]
     Route: 065
  11. CLODRONATE DISODIUM [Concomitant]
     Route: 065

REACTIONS (5)
  - ACUTE FEBRILE NEUTROPHILIC DERMATOSIS [None]
  - ANAEMIA [None]
  - CONDITION AGGRAVATED [None]
  - LUNG DISORDER [None]
  - PYODERMA GANGRENOSUM [None]
